FAERS Safety Report 21575529 (Version 2)
Quarter: 2022Q4

REPORT INFORMATION
  Report Type: Spontaneous
  Country: US (occurrence: None)
  Receive Date: 20221110
  Receipt Date: 20221118
  Transmission Date: 20230112
  Serious: Yes (Death, Life-Threatening, Hospitalization, Other)
  Sender: FDA-Public Use
  Company Number: US-MLMSERVICE-20221031-3888575-1

PATIENT
  Age: 67 Year
  Sex: Male

DRUGS (4)
  1. METHOTREXATE [Suspect]
     Active Substance: METHOTREXATE
     Indication: Psoriatic arthropathy
     Route: 065
  2. METHOTREXATE [Suspect]
     Active Substance: METHOTREXATE
     Indication: Psoriasis
  3. APREMILAST [Suspect]
     Active Substance: APREMILAST
     Indication: Psoriasis
     Route: 065
  4. ASPIRIN [Concomitant]
     Active Substance: ASPIRIN
     Route: 065

REACTIONS (20)
  - Multiple organ dysfunction syndrome [Fatal]
  - Respiratory failure [Fatal]
  - Cholestatic liver injury [Fatal]
  - Pancytopenia [Fatal]
  - Toxicity to various agents [Fatal]
  - Medication error [Unknown]
  - Diarrhoea [Unknown]
  - Rash [Unknown]
  - Oral mucosa erosion [Unknown]
  - Mouth ulceration [Unknown]
  - Abdominal pain [Unknown]
  - Mucosal inflammation [Unknown]
  - Scrotal erythema [Unknown]
  - Scrotal ulcer [Unknown]
  - Mental status changes [Unknown]
  - Blister [Unknown]
  - Scrotum erosion [Unknown]
  - Oropharyngeal pain [Unknown]
  - Skin erosion [Unknown]
  - Dysphagia [Unknown]
